FAERS Safety Report 19487115 (Version 6)
Quarter: 2022Q2

REPORT INFORMATION
  Report Type: Report from Study
  Country: CO (occurrence: CO)
  Receive Date: 20210702
  Receipt Date: 20220527
  Transmission Date: 20220720
  Serious: Yes (Hospitalization, Other)
  Sender: FDA-Public Use
  Company Number: CO-ABBVIE-21K-036-3784270-00

PATIENT
  Age: 58 Year
  Sex: Male
  Weight: 55 kg

DRUGS (3)
  1. HUMIRA [Suspect]
     Active Substance: ADALIMUMAB
     Indication: Crohn^s disease
     Route: 058
     Dates: start: 20130404
  2. HUMIRA [Suspect]
     Active Substance: ADALIMUMAB
     Indication: Crohn^s disease
     Route: 058
     Dates: end: 202111
  3. HUMIRA [Suspect]
     Active Substance: ADALIMUMAB
     Route: 058
     Dates: start: 20220126, end: 20220401

REACTIONS (11)
  - Malnutrition [Recovering/Resolving]
  - Intestinal obstruction [Not Recovered/Not Resolved]
  - Gastrointestinal disorder [Recovering/Resolving]
  - Peritonitis [Unknown]
  - Wound [Recovering/Resolving]
  - Gastrointestinal disorder [Unknown]
  - Fistula [Unknown]
  - Malaise [Not Recovered/Not Resolved]
  - Underweight [Not Recovered/Not Resolved]
  - Drug ineffective [Recovering/Resolving]
  - Pain [Recovering/Resolving]

NARRATIVE: CASE EVENT DATE: 20201001
